FAERS Safety Report 5317868-7 (Version None)
Quarter: 2007Q2

REPORT INFORMATION
  Report Type: 
  Country: None (occurrence: None)
  Receive Date: 20070430
  Receipt Date: 20070413
  Transmission Date: 20071010
  Serious: Yes (Other)
  Sender: FDA-Public Use
  Company Number: 2007RR-06921

PATIENT
  Age: 9 Year
  Sex: Male

DRUGS (1)
  1. ACETAMINOPHEN [Suspect]
     Indication: DRUG USE FOR UNKNOWN INDICATION

REACTIONS (5)
  - CONJUNCTIVITIS [None]
  - DYSPNOEA [None]
  - REACTION TO DRUG EXCIPIENTS [None]
  - SKIN TEST POSITIVE [None]
  - URTICARIA [None]
